FAERS Safety Report 13304428 (Version 1)
Quarter: 2017Q1

REPORT INFORMATION
  Report Type: Report from Study
  Country: KR (occurrence: KR)
  Receive Date: 20170308
  Receipt Date: 20170308
  Transmission Date: 20170428
  Serious: Yes (Death, Other)
  Sender: FDA-Public Use
  Company Number: KR-CIPLA LTD.-2017KR02617

PATIENT

DRUGS (3)
  1. CISPLATIN. [Suspect]
     Active Substance: CISPLATIN
     Indication: NON-SMALL CELL LUNG CANCER STAGE IV
     Dosage: 75 MG/M2, OVER 120 MIN ON DAY 1 (UP TO SIX 3-WEEK CYCLES)
     Route: 042
  2. GEMCITABINE [Suspect]
     Active Substance: GEMCITABINE\GEMCITABINE HYDROCHLORIDE
     Indication: NON-SMALL CELL LUNG CANCER STAGE IV
     Dosage: 1250 MG/M2, OVER 30 MIN ON DAYS 1 AND 8 (UP TO SIX 3-WEEK CYCLES)
     Route: 042
  3. NECITUMUMAB [Suspect]
     Active Substance: NECITUMUMAB
     Indication: NON-SMALL CELL LUNG CANCER STAGE IV
     Dosage: 800 MG, MINIMUM OF 50 MIN ON DAYS 1 AND 8
     Route: 042

REACTIONS (2)
  - Adverse event [Unknown]
  - Death [Fatal]
